FAERS Safety Report 5664501-0 (Version None)
Quarter: 2008Q1

REPORT INFORMATION
  Report Type: 
  Country: None (occurrence: None)
  Receive Date: 20080314
  Receipt Date: 20080306
  Transmission Date: 20080703
  Serious: Yes (Disabling)
  Sender: FDA-Public Use
  Company Number: B0511294A

PATIENT
  Age: 55 Year
  Sex: Female
  Weight: 90 kg

DRUGS (4)
  1. TYVERB [Suspect]
     Indication: BREAST CANCER METASTATIC
     Route: 048
     Dates: start: 20080122, end: 20080304
  2. XELODA [Suspect]
     Indication: BREAST CANCER METASTATIC
     Dosage: 8UNIT PER DAY
     Route: 048
     Dates: start: 20080122, end: 20080211
  3. SERC [Concomitant]
     Indication: VERTIGO
     Dosage: 2UNIT PER DAY
     Route: 048
     Dates: start: 20020101
  4. DOLIPRANE [Concomitant]
     Indication: PAIN IN EXTREMITY
     Dosage: 3UNIT PER DAY
     Route: 048

REACTIONS (5)
  - DRY SKIN [None]
  - EPISTAXIS [None]
  - INJURY [None]
  - PALMAR-PLANTAR ERYTHRODYSAESTHESIA SYNDROME [None]
  - SKIN FISSURES [None]
